FAERS Safety Report 11923290 (Version 1)
Quarter: 2016Q1

REPORT INFORMATION
  Report Type: Spontaneous
  Country: US (occurrence: US)
  Receive Date: 20160118
  Receipt Date: 20160118
  Transmission Date: 20160526
  Serious: Yes (Other)
  Sender: FDA-Public Use
  Company Number: US-BEH-2016057582

PATIENT
  Age: 74 Year
  Sex: Male
  Weight: 92 kg

DRUGS (26)
  1. FLECTOR [Concomitant]
     Active Substance: DICLOFENAC EPOLAMINE
  2. VITAMIN D2 [Concomitant]
     Active Substance: ERGOCALCIFEROL
  3. SPIRIVA [Concomitant]
     Active Substance: TIOTROPIUM BROMIDE MONOHYDRATE
  4. VENTOLIN [Concomitant]
     Active Substance: ALBUTEROL SULFATE
  5. EPIPEN [Concomitant]
     Active Substance: EPINEPHRINE
  6. GLIPIZIDE. [Concomitant]
     Active Substance: GLIPIZIDE
  7. LIPITOR [Concomitant]
     Active Substance: ATORVASTATIN CALCIUM
  8. NEXIUM [Concomitant]
     Active Substance: ESOMEPRAZOLE MAGNESIUM
  9. HIZENTRA [Suspect]
     Active Substance: HUMAN IMMUNOGLOBULIN G
     Route: 058
  10. DIPHENHYDRAMINE. [Concomitant]
     Active Substance: DIPHENHYDRAMINE
  11. CARISOPRODOL. [Concomitant]
     Active Substance: CARISOPRODOL
  12. SINGULAIR [Concomitant]
     Active Substance: MONTELUKAST SODIUM
  13. HIZENTRA [Suspect]
     Active Substance: HUMAN IMMUNOGLOBULIN G
     Indication: IMMUNODEFICIENCY COMMON VARIABLE
     Route: 058
  14. VOLTAREN [Concomitant]
     Active Substance: DICLOFENAC SODIUM
  15. ZADITOR [Concomitant]
     Active Substance: KETOTIFEN FUMARATE
  16. LIDOCAINE/PRILOCAINE [Concomitant]
  17. GLUCOTROL [Concomitant]
     Active Substance: GLIPIZIDE
  18. XALATAN [Concomitant]
     Active Substance: LATANOPROST
  19. VITA D3 [Concomitant]
  20. BRIMONIDINE TARTRATE. [Concomitant]
     Active Substance: BRIMONIDINE TARTRATE
  21. GLUCOPHAGE [Concomitant]
     Active Substance: METFORMIN HYDROCHLORIDE
  22. NAPROXEN. [Concomitant]
     Active Substance: NAPROXEN
  23. NORVASC [Concomitant]
     Active Substance: AMLODIPINE BESYLATE
  24. AZITHROMYCIN ANHYDROUS. [Concomitant]
     Active Substance: AZITHROMYCIN ANHYDROUS
  25. HYZAAR [Concomitant]
     Active Substance: HYDROCHLOROTHIAZIDE\LOSARTAN POTASSIUM
  26. OMEGA 3 FISH OIL [Concomitant]
     Active Substance: FISH OIL\OMEGA-3 FATTY ACIDS

REACTIONS (2)
  - Vascular occlusion [Unknown]
  - Swan ganz catheter placement [Unknown]

NARRATIVE: CASE EVENT DATE: 20151221
